FAERS Safety Report 17550833 (Version 1)
Quarter: 2020Q1

REPORT INFORMATION
  Report Type: Spontaneous
  Country: GB (occurrence: GB)
  Receive Date: 20200317
  Receipt Date: 20200317
  Transmission Date: 20200409
  Serious: Yes (Disabling)
  Sender: FDA-Public Use
  Company Number: GB-PFIZER INC-2020112276

PATIENT
  Age: 37 Year
  Sex: Female
  Weight: 65 kg

DRUGS (1)
  1. ZOLOFT [Suspect]
     Active Substance: SERTRALINE HYDROCHLORIDE
     Dosage: UNK (0.5-1MG PER DAY)
     Route: 048
     Dates: start: 20190415, end: 20191130

REACTIONS (2)
  - Loss of libido [Recovering/Resolving]
  - Vulvovaginal dryness [Recovering/Resolving]

NARRATIVE: CASE EVENT DATE: 20190420
